FAERS Safety Report 9022331 (Version 2)
Quarter: 2013Q1

REPORT INFORMATION
  Report Type: Report from Study
  Country: CA (occurrence: CA)
  Receive Date: 20130118
  Receipt Date: 20130228
  Transmission Date: 20140127
  Serious: Yes (Life-Threatening, Other)
  Sender: FDA-Public Use
  Company Number: PHHY2013CA004291

PATIENT
  Age: 53 None
  Sex: Female

DRUGS (10)
  1. CLOZARIL [Suspect]
     Indication: SCHIZOPHRENIA
     Dosage: 500 MG, DAILY
     Route: 048
     Dates: start: 20050211
  2. CLOZARIL [Suspect]
     Dosage: UNK UKN, UNK
     Route: 048
  3. ARICEPT [Concomitant]
  4. VENTOLIN                           /00942701/ [Concomitant]
  5. ZANTAC [Concomitant]
  6. LEVOCARB [Concomitant]
  7. VENLAFAXINE [Concomitant]
  8. METFORMIN [Concomitant]
  9. INSULIN [Concomitant]
  10. ADVAIR [Concomitant]

REACTIONS (3)
  - Breast cancer [Unknown]
  - White blood cell count increased [Unknown]
  - Neutrophil count increased [Unknown]
